FAERS Safety Report 5001226-9 (Version None)
Quarter: 2006Q2

REPORT INFORMATION
  Report Type: 
  Country: None (occurrence: None)
  Receive Date: 20060501
  Receipt Date: 20060424
  Transmission Date: 20061013
  Serious: Yes (Other)
  Sender: FDA-Public Use
  Company Number: 2006055452

PATIENT
  Age: 39 Year
  Sex: Male
  Weight: 90.7194 kg

DRUGS (4)
  1. ZYRTEC [Suspect]
     Indication: MULTIPLE ALLERGIES
     Dosage: 10 MG (10 MG, 1 IN 1 D)
     Dates: start: 20040101
  2. IBUPROFEN [Suspect]
     Indication: PAIN
     Dosage: (800 MG)
     Dates: start: 20060406
  3. MONTELUKAST SODIUM (MONTELUKAST SODIUM) [Concomitant]
  4. NEXIUM [Concomitant]

REACTIONS (6)
  - DRUG EFFECT DECREASED [None]
  - DRY MOUTH [None]
  - PHARMACEUTICAL PRODUCT COMPLAINT [None]
  - POOR QUALITY DRUG ADMINISTERED [None]
  - SINUSITIS [None]
  - VASCULAR OPERATION [None]
